FAERS Safety Report 4552017-4 (Version None)
Quarter: 2004Q4

REPORT INFORMATION
  Report Type: 
  Country: None (occurrence: None)
  Receive Date: 20041217
  Receipt Date: 20040816
  Transmission Date: 20050328
  Serious: No
  Sender: FDA-Public Use
  Company Number: 2004-BP-06999BP

PATIENT
  Sex: Male

DRUGS (6)
  1. SPIRIVA [Suspect]
     Indication: BRONCHITIS CHRONIC
     Dosage: 18 MCG (18 MC, ONCE DAILY) IH
     Route: 055
     Dates: start: 20040701
  2. VALTREX [Concomitant]
  3. MEPRON [Concomitant]
  4. ALLOPURINOL [Concomitant]
  5. NEXIUM [Concomitant]
  6. PROZAC [Concomitant]

REACTIONS (3)
  - DRY MOUTH [None]
  - DYSGEUSIA [None]
  - PRURITUS [None]
